FAERS Safety Report 25146254 (Version 1)
Quarter: 2025Q2

REPORT INFORMATION
  Report Type: Spontaneous
  Country: US (occurrence: None)
  Receive Date: 20250401
  Receipt Date: 20250401
  Transmission Date: 20250716
  Serious: No
  Sender: FDA-CTU
  Company Number: None

PATIENT
  Age: 62 Year
  Sex: Female

DRUGS (1)
  1. ENBREL [Suspect]
     Active Substance: ETANERCEPT
     Indication: Psoriatic arthropathy
     Dosage: INJECT 1 PEN (1 ML) BY UNDER THE SKIN (SUBCUTANEOUS INJECTION) EVERY WEEK
     Route: 058
     Dates: start: 20201020

REACTIONS (7)
  - COVID-19 [None]
  - Psoriatic arthropathy [None]
  - Loss of personal independence in daily activities [None]
  - Pain [None]
  - Therapy interrupted [None]
  - Economic problem [None]
  - Infection [None]

NARRATIVE: CASE EVENT DATE: 20241224
